FAERS Safety Report 9160791 (Version 3)
Quarter: 2013Q2

REPORT INFORMATION
  Report Type: Spontaneous
  Country: JP (occurrence: JP)
  Receive Date: 20130313
  Receipt Date: 20130411
  Transmission Date: 20140414
  Serious: Yes (Other)
  Sender: FDA-Public Use
  Company Number: JP-JNJFOC-20130302604

PATIENT
  Age: 10 Year
  Sex: Male

DRUGS (5)
  1. REMICADE [Suspect]
     Indication: COLITIS ULCERATIVE
     Route: 042
  2. TACROLIMUS [Suspect]
     Indication: COLITIS ULCERATIVE
     Route: 065
  3. TACROLIMUS [Suspect]
     Indication: COLITIS ULCERATIVE
     Route: 065
  4. TACROLIMUS [Suspect]
     Indication: COLITIS ULCERATIVE
     Route: 065
  5. GANCICLOVIR [Concomitant]
     Indication: CYTOMEGALOVIRUS INFECTION
     Route: 065

REACTIONS (3)
  - Duodenal ulcer [Recovering/Resolving]
  - Gastric mucosal lesion [Not Recovered/Not Resolved]
  - Cytomegalovirus test positive [Unknown]
